FAERS Safety Report 15260352 (Version 7)
Quarter: 2019Q2

REPORT INFORMATION
  Report Type: Spontaneous
  Country: CA (occurrence: CA)
  Receive Date: 20180809
  Receipt Date: 20190502
  Transmission Date: 20190711
  Serious: Yes (Other)
  Sender: FDA-Public Use
  Company Number: CA-PFIZER INC-2018312896

PATIENT
  Age: 70 Year
  Sex: Male

DRUGS (2)
  1. BESPONSA [Suspect]
     Active Substance: INOTUZUMAB OZOGAMICIN
     Indication: ACUTE LYMPHOCYTIC LEUKAEMIA
     Dosage: UNK, (FIRST CYCLE)
     Dates: start: 20180726
  2. BESPONSA [Suspect]
     Active Substance: INOTUZUMAB OZOGAMICIN
     Dosage: 0.84 MG, CYCLIC (0.84 MG (DAY 1), 0.84 MG (DAY 8) AND 0.84 MG (DAY 15))

REACTIONS (6)
  - Fatigue [Recovered/Resolved]
  - Red blood cell count decreased [Recovering/Resolving]
  - Bone marrow disorder [Recovering/Resolving]
  - Neutropenia [Recovering/Resolving]
  - Dyspnoea [Recovered/Resolved]
  - Decreased appetite [Recovered/Resolved]

NARRATIVE: CASE EVENT DATE: 2018
